FAERS Safety Report 4361095-7 (Version None)
Quarter: 2004Q2

REPORT INFORMATION
  Report Type: 
  Country: None (occurrence: None)
  Receive Date: 20040520
  Receipt Date: 20040513
  Transmission Date: 20050107
  Serious: Yes (Other)
  Sender: FDA-Public Use
  Company Number: US-ROCHE-367708

PATIENT
  Sex: Female

DRUGS (1)
  1. XELODA [Suspect]
     Indication: SIGNET-RING CELL CARCINOMA
     Route: 048
     Dates: start: 20020615

REACTIONS (3)
  - FATIGUE [None]
  - PALMAR-PLANTAR ERYTHRODYSAESTHESIA SYNDROME [None]
  - SARCOIDOSIS [None]
